FAERS Safety Report 7888736-1 (Version None)
Quarter: 2011Q4

REPORT INFORMATION
  Report Type: 
  Country: None (occurrence: None)
  Receive Date: 20111103
  Receipt Date: 20111025
  Transmission Date: 20120403
  Serious: Yes (Other)
  Sender: FDA-Public Use
  Company Number: US-PFIZER INC-US-WYE-H17844510

PATIENT
  Sex: Female
  Weight: 147.39 kg

DRUGS (15)
  1. EFFEXOR XR [Suspect]
     Indication: BIPOLAR DISORDER
     Dosage: 150 MG, 1X/DAY
     Dates: end: 20100701
  2. ZOLOFT [Suspect]
     Indication: ANXIETY
  3. ZYPREXA [Suspect]
     Indication: MAJOR DEPRESSION
  4. EFFEXOR XR [Suspect]
     Indication: ANXIETY
  5. GEODON [Suspect]
     Indication: MAJOR DEPRESSION
  6. GEODON [Suspect]
     Indication: BIPOLAR DISORDER
     Dosage: UNKNOWN
  7. TOPAMAX [Suspect]
     Indication: ANXIETY
  8. ZOLOFT [Suspect]
     Indication: MAJOR DEPRESSION
  9. ZYPREXA [Suspect]
     Indication: ANXIETY
  10. EFFEXOR XR [Suspect]
     Indication: MAJOR DEPRESSION
     Dosage: 150 MG, 1X/DAY
     Route: 048
  11. TOPAMAX [Suspect]
     Indication: MAJOR DEPRESSION
  12. ZOLOFT [Suspect]
     Indication: BIPOLAR DISORDER
     Dosage: UNKNOWN
  13. ZYPREXA [Suspect]
     Indication: BIPOLAR DISORDER
     Dosage: UNKNOWN
  14. TOPAMAX [Suspect]
     Indication: BIPOLAR DISORDER
     Dosage: UNKNOWN
  15. GEODON [Suspect]
     Indication: ANXIETY

REACTIONS (11)
  - DRY MOUTH [None]
  - ANHEDONIA [None]
  - MEMORY IMPAIRMENT [None]
  - FEELING ABNORMAL [None]
  - THINKING ABNORMAL [None]
  - FORMICATION [None]
  - JOINT SWELLING [None]
  - BLOOD GLUCOSE INCREASED [None]
  - SKIN ODOUR ABNORMAL [None]
  - THIRST [None]
  - VITAMIN D DECREASED [None]
